FAERS Safety Report 8543193-7 (Version None)
Quarter: 2012Q3

REPORT INFORMATION
  Report Type: 
  Country: None (occurrence: None)
  Receive Date: 20120727
  Receipt Date: 20120719
  Transmission Date: 20120928
  Serious: Yes (Other)
  Sender: FDA-Public Use
  Company Number: US-CELGENEUS-163-21880-12072227

PATIENT
  Sex: Male

DRUGS (2)
  1. REVLIMID [Suspect]
     Dosage: 50 MILLIGRAM
     Route: 048
     Dates: start: 20120323
  2. REVLIMID [Suspect]
     Dosage: 35 MILLIGRAM
     Route: 048
     Dates: start: 20120601, end: 20120719

REACTIONS (1)
  - DRUG INTOLERANCE [None]
